FAERS Safety Report 5872763-X (Version None)
Quarter: 2008Q3

REPORT INFORMATION
  Report Type: 
  Country: None (occurrence: None)
  Receive Date: 20080905
  Receipt Date: 20080826
  Transmission Date: 20090109
  Serious: Yes (Disabling, Other)
  Sender: FDA-Public Use
  Company Number: US-PFIZER INC-2008007449

PATIENT
  Sex: Male
  Weight: 108.9 kg

DRUGS (1)
  1. VIAGRA [Suspect]
     Indication: ERECTILE DYSFUNCTION
     Route: 048

REACTIONS (5)
  - ANXIETY [None]
  - BLINDNESS [None]
  - DEAFNESS UNILATERAL [None]
  - OPTIC ISCHAEMIC NEUROPATHY [None]
  - SCOTOMA [None]
